FAERS Safety Report 24724247 (Version 3)
Quarter: 2025Q2

REPORT INFORMATION
  Report Type: Spontaneous
  Country: JP (occurrence: JP)
  Receive Date: 20241211
  Receipt Date: 20250620
  Transmission Date: 20250716
  Serious: Yes (Death, Hospitalization, Other)
  Sender: UNITED THERAPEUTICS
  Company Number: JP-UNITED THERAPEUTICS-UNT-2024-039511

PATIENT
  Age: 84 Year
  Sex: Female

DRUGS (1)
  1. TYVASO [Suspect]
     Active Substance: TREPROSTINIL
     Indication: Pulmonary hypertension

REACTIONS (3)
  - Hepatic cirrhosis [Fatal]
  - Condition aggravated [Fatal]
  - Physical deconditioning [Unknown]

NARRATIVE: CASE EVENT DATE: 20241203
